FAERS Safety Report 15999953 (Version 1)
Quarter: 2019Q1

REPORT INFORMATION
  Report Type: Spontaneous
  Country: GB (occurrence: GB)
  Receive Date: 20190225
  Receipt Date: 20190225
  Transmission Date: 20190418
  Serious: Yes (Life-Threatening)
  Sender: FDA-Public Use
  Company Number: GB-ABBVIE-19S-167-2613024-00

PATIENT
  Age: 68 Year
  Sex: Male

DRUGS (1)
  1. LEVOBUPIVACAINE [Suspect]
     Active Substance: LEVOBUPIVACAINE
     Indication: PRODUCT USED FOR UNKNOWN INDICATION
     Route: 050
     Dates: start: 20180601

REACTIONS (1)
  - Idiosyncratic drug reaction [Recovered/Resolved]

NARRATIVE: CASE EVENT DATE: 20180601
